FAERS Safety Report 15703711 (Version 1)
Quarter: 2018Q4

REPORT INFORMATION
  Report Type: Spontaneous
  Country: US (occurrence: US)
  Receive Date: 20181210
  Receipt Date: 20181210
  Transmission Date: 20190205
  Serious: No
  Sender: FDA-Public Use
  Company Number: US-ASTRAZENECA-2018SF53615

PATIENT
  Age: 79 Year
  Sex: Female
  Weight: 61.7 kg

DRUGS (2)
  1. OMEPRAZOLE. [Suspect]
     Active Substance: OMEPRAZOLE
     Route: 048
  2. NEXIUM 24HR [Suspect]
     Active Substance: ESOMEPRAZOLE MAGNESIUM
     Indication: GASTROOESOPHAGEAL REFLUX DISEASE
     Dosage: 1 DF, ONCE A DAY OR EVERY OTHER DAY
     Route: 048

REACTIONS (3)
  - Overweight [Unknown]
  - Headache [Unknown]
  - Intentional product misuse [Not Recovered/Not Resolved]
